FAERS Safety Report 12232191 (Version 4)
Quarter: 2016Q2

REPORT INFORMATION
  Report Type: Spontaneous
  Country: US (occurrence: US)
  Receive Date: 20160401
  Receipt Date: 20160509
  Transmission Date: 20160815
  Serious: No
  Sender: FDA-Public Use
  Company Number: US-PFIZER INC-2016147900

PATIENT
  Age: 74 Year
  Sex: Female
  Weight: 74 kg

DRUGS (3)
  1. ADVIL MIGRAINE [Suspect]
     Active Substance: IBUPROFEN
     Indication: MIGRAINE
     Dosage: 400 MG, 1X/DAY, AT BEDTIME FOR TWO NIGHTS
     Route: 048
     Dates: start: 20160303, end: 20160304
  2. ASPIRIN. [Suspect]
     Active Substance: ASPIRIN
     Dosage: UNK
  3. TYLENOL [Suspect]
     Active Substance: ACETAMINOPHEN
     Dosage: UNK

REACTIONS (4)
  - Dizziness [Unknown]
  - Headache [Unknown]
  - Nerve injury [Unknown]
  - Product commingling [Unknown]

NARRATIVE: CASE EVENT DATE: 201603
